FAERS Safety Report 7608706-8 (Version None)
Quarter: 2011Q3

REPORT INFORMATION
  Report Type: 
  Country: None (occurrence: None)
  Receive Date: 20110714
  Receipt Date: 20110701
  Transmission Date: 20111222
  Serious: Yes (Hospitalization)
  Sender: FDA-Public Use
  Company Number: GR-AMGEN-GRCSP2011029578

PATIENT
  Sex: Female

DRUGS (4)
  1. ALLOPURINOL [Concomitant]
     Dosage: UNK
  2. PROLIA [Suspect]
     Indication: OSTEOPOROSIS
     Dosage: UNK
  3. LOSEC                              /00661201/ [Concomitant]
     Dosage: UNK
  4. VASTAREL [Concomitant]
     Dosage: UNK

REACTIONS (4)
  - TETANY [None]
  - BLOOD PARATHYROID HORMONE INCREASED [None]
  - HYPOCALCAEMIA [None]
  - VOMITING [None]
